FAERS Safety Report 7014913-8 (Version None)
Quarter: 2010Q3

REPORT INFORMATION
  Report Type: 
  Country: None (occurrence: None)
  Receive Date: 20100927
  Receipt Date: 20091111
  Transmission Date: 20110219
  Serious: No
  Sender: FDA-Public Use
  Company Number: US-ASTRAZENECA-2009SE25913

PATIENT
  Sex: Female
  Weight: 48.5 kg

DRUGS (5)
  1. ARIMIDEX [Suspect]
     Route: 048
     Dates: start: 20090401
  2. PROTONIX [Concomitant]
  3. REGLAN [Concomitant]
  4. ZANTAC [Concomitant]
  5. XANAX [Concomitant]

REACTIONS (4)
  - DYSPEPSIA [None]
  - EATING DISORDER [None]
  - GASTROOESOPHAGEAL REFLUX DISEASE [None]
  - WEIGHT DECREASED [None]
